FAERS Safety Report 4500706-X (Version None)
Quarter: 2004Q4

REPORT INFORMATION
  Report Type: 
  Country: None (occurrence: None)
  Receive Date: 20041112
  Receipt Date: 20041112
  Transmission Date: 20050328
  Serious: No
  Sender: FDA-Public Use
  Company Number: None

PATIENT
  Age: 67 Year
  Sex: Male
  Weight: 102.0593 kg

DRUGS (5)
  1. DYAZIDE [Suspect]
     Indication: HYPERTENSION
     Dosage: ONE PO DAILY
     Route: 048
     Dates: start: 20041105, end: 20041108
  2. NEXIUM [Concomitant]
  3. PROVENTIL [Concomitant]
  4. FLOVENT [Concomitant]
  5. VIAGRA [Concomitant]

REACTIONS (4)
  - DIZZINESS [None]
  - HEADACHE [None]
  - HYPERHIDROSIS [None]
  - PALPITATIONS [None]
